FAERS Safety Report 8182141-9 (Version None)
Quarter: 2012Q1

REPORT INFORMATION
  Report Type: 
  Country: None (occurrence: None)
  Receive Date: 20120302
  Receipt Date: 20120223
  Transmission Date: 20120608
  Serious: Yes (Other)
  Sender: FDA-Public Use
  Company Number: ES-ASTRAZENECA-2012SE12787

PATIENT
  Age: 72 Year
  Sex: Male

DRUGS (1)
  1. TENORMIN [Suspect]
     Indication: MYOCARDIAL ISCHAEMIA
     Route: 048
     Dates: start: 20100101, end: 20101117

REACTIONS (1)
  - BRADYCARDIA [None]
